FAERS Safety Report 26212443 (Version 1)
Quarter: 2025Q4

REPORT INFORMATION
  Report Type: Other
  Country: EU (occurrence: EU)
  Receive Date: 20251230
  Receipt Date: 20251230
  Transmission Date: 20260118
  Serious: Yes (Hospitalization)
  Sender: STEMLINE THERAPEUTICS
  Company Number: EU-STEMLINE THERAPEUTICS, INC-2025-STML-DE004345

PATIENT

DRUGS (1)
  1. ORSERDU [Suspect]
     Active Substance: ELACESTRANT
     Indication: Breast cancer female
     Dosage: 345 MG
     Route: 048
     Dates: start: 20250911

REACTIONS (2)
  - Foreign body in throat [Recovered/Resolved]
  - Chemical burn of respiratory tract [Recovered/Resolved]

NARRATIVE: CASE EVENT DATE: 20251125
